FAERS Safety Report 10014597 (Version 1)
Quarter: 2014Q1

REPORT INFORMATION
  Report Type: Spontaneous
  Country: NL (occurrence: NL)
  Receive Date: 20140317
  Receipt Date: 20140317
  Transmission Date: 20141002
  Serious: Yes (Life-Threatening, Hospitalization)
  Sender: FDA-Public Use
  Company Number: NL-ELI_LILLY_AND_COMPANY-NL201403002099

PATIENT
  Sex: Male

DRUGS (3)
  1. CYMBALTA [Suspect]
     Indication: ANXIETY
     Dosage: 30 MG, BID
     Route: 065
     Dates: start: 201309
  2. CYMBALTA [Suspect]
     Indication: PANIC ATTACK
  3. NEXIUM                             /01479302/ [Concomitant]
     Indication: BARRETT^S OESOPHAGUS
     Dosage: UNK, UNKNOWN
     Route: 065

REACTIONS (4)
  - Oesophageal compression [Unknown]
  - Haemoptysis [Unknown]
  - Blood iron decreased [Unknown]
  - Drug hypersensitivity [Unknown]
